FAERS Safety Report 7472184-2 (Version None)
Quarter: 2011Q2

REPORT INFORMATION
  Report Type: 
  Country: None (occurrence: None)
  Receive Date: 20110511
  Receipt Date: 20110223
  Transmission Date: 20111010
  Serious: No
  Sender: FDA-Public Use
  Company Number: A0915966A

PATIENT
  Sex: Female

DRUGS (1)
  1. TYKERB [Suspect]
     Indication: BREAST CANCER
     Dosage: 1000MG PER DAY
     Route: 048

REACTIONS (2)
  - DIARRHOEA [None]
  - DRY EYE [None]
